FAERS Safety Report 10039140 (Version 1)
Quarter: 2014Q1

REPORT INFORMATION
  Report Type: Spontaneous
  Country: US (occurrence: None)
  Receive Date: 20140306
  Receipt Date: 20140306
  Transmission Date: 20141002
  Serious: Yes (Disabling)
  Sender: FDA-Public Use
  Company Number: 163-21880-13062085

PATIENT
  Age: 84 Year
  Sex: Female

DRUGS (4)
  1. REVLIMID (LENALIDOMIDE) (CAPSULES) [Suspect]
     Indication: PLASMA CELL MYELOMA
     Route: 048
     Dates: start: 20121219
  2. GABAPENTIN (GABAPENTIN) (CAPSULES) [Concomitant]
  3. DEXAMETHASONE (DEXAMETHASONE) (TABLETS) [Concomitant]
  4. OXYCOCDONE-ACETAMINOPHEN (OXYCOCET) (TABLETS) [Concomitant]

REACTIONS (1)
  - Asthenia [None]
